FAERS Safety Report 4289682-5 (Version None)
Quarter: 2004Q1

REPORT INFORMATION
  Report Type: 
  Country: None (occurrence: None)
  Receive Date: 20040203
  Receipt Date: 20030613
  Transmission Date: 20041129
  Serious: Yes (Hospitalization, Other)
  Sender: FDA-Public Use
  Company Number: 200319056BWH

PATIENT
  Age: 51 Year
  Sex: Female
  Weight: 72.5755 kg

DRUGS (1)
  1. AVELOX [Suspect]
     Dosage: ONCE, ORAL
     Route: 048

REACTIONS (3)
  - ANAPHYLACTOID REACTION [None]
  - DIZZINESS [None]
  - NAUSEA [None]
